FAERS Safety Report 7997964-6 (Version None)
Quarter: 2011Q4

REPORT INFORMATION
  Report Type: 
  Country: None (occurrence: None)
  Receive Date: 20111221
  Receipt Date: 20111219
  Transmission Date: 20120403
  Serious: Yes (Other)
  Sender: FDA-Public Use
  Company Number: PHHY2010DE52746

PATIENT
  Sex: Female
  Weight: 53 kg

DRUGS (5)
  1. PREDNISOLONE ACETATE [Concomitant]
     Indication: MULTIPLE SCLEROSIS
     Dosage: 10 MG, UNK
  2. CALCIUM [Concomitant]
     Indication: OSTEOPOROSIS
  3. VITAMIN D [Concomitant]
     Indication: OSTEOPOROSIS
     Dosage: UNK UKN, UNK
  4. ZOLEDRONOC ACID [Suspect]
     Indication: OSTEOPOROSIS
     Dosage: 5 MG, ONCE YEAR
     Dates: start: 20100128
  5. FLUPIRTINE MALEATE [Concomitant]
     Indication: OSTEOPOROSIS

REACTIONS (3)
  - FOOT FRACTURE [None]
  - HYPERSENSITIVITY [None]
  - ASTHENIA [None]
